FAERS Safety Report 12714062 (Version 1)
Quarter: 2016Q3

REPORT INFORMATION
  Report Type: Spontaneous
  Country: US (occurrence: US)
  Receive Date: 20160905
  Receipt Date: 20160905
  Transmission Date: 20161109
  Serious: Yes (Disabling)
  Sender: FDA-Public Use
  Company Number: US-009507513-1609USA000343

PATIENT
  Age: 58 Year
  Sex: Female

DRUGS (5)
  1. COMPAZINE [Concomitant]
     Active Substance: PROCHLORPERAZINE MALEATE
     Dosage: UNK
  2. NEXIUM [Concomitant]
     Active Substance: ESOMEPRAZOLE MAGNESIUM
     Dosage: UNK
  3. ZYPREXA [Concomitant]
     Active Substance: OLANZAPINE
     Dosage: UNK
  4. EMEND [Suspect]
     Active Substance: APREPITANT
     Indication: PROPHYLAXIS OF NAUSEA AND VOMITING
     Dosage: UNK
     Route: 042
  5. AMINO ACIDS (UNSPECIFIED) (+) CARBOHYDRATES (UNSPECIFIED) (+) ELECTROL [Concomitant]
     Dosage: UNK
     Route: 051

REACTIONS (2)
  - Drug ineffective [Recovering/Resolving]
  - Malaise [Recovering/Resolving]
